FAERS Safety Report 25811943 (Version 1)
Quarter: 2025Q3

REPORT INFORMATION
  Report Type: Spontaneous
  Country: US (occurrence: US)
  Receive Date: 20250917
  Receipt Date: 20250917
  Transmission Date: 20251021
  Serious: Yes (Hospitalization, Other)
  Sender: AZURITY PHARMACEUTICALS
  Company Number: US-AZURITY PHARMACEUTICALS, INC.-AZR202509-002773

PATIENT
  Age: 33 Year
  Sex: Male

DRUGS (3)
  1. BACLOFEN [Suspect]
     Active Substance: BACLOFEN
     Indication: Muscle spasticity
     Route: 037
  2. BACLOFEN [Suspect]
     Active Substance: BACLOFEN
     Route: 065
  3. CLONAZEPAM [Concomitant]
     Active Substance: CLONAZEPAM
     Indication: Product used for unknown indication
     Route: 065

REACTIONS (8)
  - Supraventricular tachycardia [Recovering/Resolving]
  - Loss of consciousness [Recovering/Resolving]
  - Eye movement disorder [Recovering/Resolving]
  - Pulseless electrical activity [Recovering/Resolving]
  - Confusional state [Recovering/Resolving]
  - Hypotension [Recovering/Resolving]
  - Musculoskeletal stiffness [Recovering/Resolving]
  - Drug withdrawal syndrome [Recovering/Resolving]
